FAERS Safety Report 11126842 (Version 4)
Quarter: 2015Q2

REPORT INFORMATION
  Report Type: Spontaneous
  Country: IT (occurrence: IT)
  Receive Date: 20150520
  Receipt Date: 20150605
  Transmission Date: 20150821
  Serious: Yes (Life-Threatening)
  Sender: FDA-Public Use
  Company Number: IT-AMGEN-ITASP2015048170

PATIENT
  Age: 58 Year
  Sex: Female

DRUGS (4)
  1. IDEOS [Concomitant]
     Active Substance: CALCIUM CARBONATE\CHOLECALCIFEROL
     Indication: OSTEOPENIA
     Dosage: 500 MG, UNK
     Route: 048
     Dates: start: 200912
  2. REUMAFLEX                          /00113802/ [Suspect]
     Active Substance: METHOTREXATE SODIUM
     Indication: ANKYLOSING SPONDYLITIS
     Dosage: 7.5 MG, WEEKLY
     Route: 058
     Dates: start: 20111101, end: 20150324
  3. ENBREL [Suspect]
     Active Substance: ETANERCEPT
     Indication: ANKYLOSING SPONDYLITIS
     Dosage: 50 MG, WEEKLY
     Route: 058
     Dates: start: 20120301, end: 20141205
  4. LYRICA [Concomitant]
     Active Substance: PREGABALIN
     Indication: POLYNEUROPATHY
     Dosage: 150 MG, UNK
     Route: 048
     Dates: start: 201309

REACTIONS (1)
  - Lung adenocarcinoma [Not Recovered/Not Resolved]

NARRATIVE: CASE EVENT DATE: 20150409
